FAERS Safety Report 18094695 (Version 1)
Quarter: 2020Q3

REPORT INFORMATION
  Report Type: Spontaneous
  Country: US (occurrence: US)
  Receive Date: 20200731
  Receipt Date: 20200731
  Transmission Date: 20201103
  Serious: Yes (Hospitalization, Other)
  Sender: FDA-Public Use
  Company Number: US-AUROBINDO-AUR-APL-2020-036910

PATIENT
  Age: 64 Year
  Sex: Female

DRUGS (1)
  1. RISEDRONATE [Suspect]
     Active Substance: RISEDRONATE SODIUM
     Indication: OSTEOPOROSIS
     Dosage: UNK
     Route: 065
     Dates: start: 2002, end: 2014

REACTIONS (2)
  - Osteonecrosis of jaw [Recovered/Resolved]
  - Osteosclerosis [Recovered/Resolved]

NARRATIVE: CASE EVENT DATE: 201802
